FAERS Safety Report 19720253 (Version 2)
Quarter: 2021Q4

REPORT INFORMATION
  Report Type: Spontaneous
  Country: JP (occurrence: JP)
  Receive Date: 20210819
  Receipt Date: 20211006
  Transmission Date: 20220304
  Serious: Yes (Hospitalization)
  Sender: FDA-Public Use
  Company Number: None

PATIENT
  Age: 85 Year
  Sex: Male

DRUGS (8)
  1. PREDNISOLONE [Suspect]
     Active Substance: PREDNISOLONE
     Indication: Deafness neurosensory
     Dosage: 30 MILLIGRAM, QD
     Route: 048
  2. PREDNISOLONE [Suspect]
     Active Substance: PREDNISOLONE
     Dosage: 25 MILLIGRAM, QD
     Route: 048
  3. PREDNISOLONE [Suspect]
     Active Substance: PREDNISOLONE
     Dosage: 20 MILLIGRAM, QD
     Route: 048
  4. PREDNISOLONE [Suspect]
     Active Substance: PREDNISOLONE
     Dosage: 10 MILLIGRAM, QD
     Route: 048
  5. TROPICAMIDE [Concomitant]
     Active Substance: TROPICAMIDE
     Indication: Scleritis
     Dosage: THREE TIMES A DAY
     Route: 061
  6. TROPICAMIDE [Concomitant]
     Active Substance: TROPICAMIDE
     Indication: Iridocyclitis
  7. BETAMETHASONE [Concomitant]
     Active Substance: BETAMETHASONE
     Indication: Scleritis
     Route: 061
  8. BETAMETHASONE [Concomitant]
     Active Substance: BETAMETHASONE
     Indication: Iridocyclitis

REACTIONS (2)
  - Muscular weakness [Unknown]
  - Gait disturbance [Unknown]
